FAERS Safety Report 7406578-8 (Version None)
Quarter: 2011Q2

REPORT INFORMATION
  Report Type: 
  Country: None (occurrence: None)
  Receive Date: 20110406
  Receipt Date: 20110406
  Transmission Date: 20111010
  Serious: Yes (Other)
  Sender: FDA-Public Use
  Company Number: None

PATIENT
  Age: 32 Year
  Sex: Male
  Weight: 146.9654 kg

DRUGS (1)
  1. SUBOXONE [Suspect]
     Indication: DEPENDENCE
     Dosage: 8/2 DAILY SL
     Route: 060
     Dates: start: 20110218, end: 20110404

REACTIONS (3)
  - ERYTHEMA [None]
  - SWELLING [None]
  - PAIN [None]
